FAERS Safety Report 4845760-0 (Version None)
Quarter: 2005Q4

REPORT INFORMATION
  Report Type: 
  Country: None (occurrence: None)
  Receive Date: 20051201
  Receipt Date: 20051118
  Transmission Date: 20060501
  Serious: Yes (Death, Life-Threatening, Hospitalization)
  Sender: FDA-Public Use
  Company Number: 218651

PATIENT
  Age: 60 Year
  Sex: Female

DRUGS (5)
  1. RAPTIVA [Suspect]
     Indication: PSORIASIS
     Dosage: 1 MG/KG, Q2W, UNK
     Dates: start: 20021028, end: 20050921
  2. DILACOR (DILTIAZEM HYDROCHLORIDE) [Concomitant]
  3. VASOTEC (ENALAPRIL MALEAT) [Concomitant]
  4. LEXAPRO [Concomitant]
  5. NEURONTIN [Concomitant]

REACTIONS (32)
  - ACUTE RESPIRATORY DISTRESS SYNDROME [None]
  - ALANINE AMINOTRANSFERASE INCREASED [None]
  - ASPARTATE AMINOTRANSFERASE INCREASED [None]
  - BLASTOMYCOSIS [None]
  - BLOOD ALBUMIN DECREASED [None]
  - BLOOD ALKALINE PHOSPHATASE INCREASED [None]
  - BLOOD PH INCREASED [None]
  - DEHYDRATION [None]
  - DIARRHOEA [None]
  - FIBROSIS [None]
  - FUNGUS STOOL IDENTIFIED [None]
  - HAEMANGIOMA OF LIVER [None]
  - HAEMATOCRIT DECREASED [None]
  - HAEMOGLOBIN DECREASED [None]
  - HILAR LYMPHADENOPATHY [None]
  - INFECTION IN AN IMMUNOCOMPROMISED HOST [None]
  - LUNG INFILTRATION [None]
  - MALNUTRITION [None]
  - MULTI-ORGAN FAILURE [None]
  - NAUSEA [None]
  - NEUTROPHIL PERCENTAGE INCREASED [None]
  - NOSOCOMIAL INFECTION [None]
  - OESOPHAGEAL CARCINOMA [None]
  - PAIN [None]
  - PERICARDIAL EFFUSION [None]
  - PLEURAL EFFUSION [None]
  - PNEUMONIA BLASTOMYCES [None]
  - PSEUDOMONAS INFECTION [None]
  - RESPIRATORY FAILURE [None]
  - SEPSIS [None]
  - THERAPY NON-RESPONDER [None]
  - VOMITING [None]
